FAERS Safety Report 16341855 (Version 1)
Quarter: 2019Q2

REPORT INFORMATION
  Report Type: Spontaneous
  Country: US (occurrence: US)
  Receive Date: 20190521
  Receipt Date: 20190521
  Transmission Date: 20190711
  Serious: No
  Sender: FDA-Public Use
  Company Number: None

PATIENT
  Age: 51 Year
  Sex: Female
  Weight: 39.15 kg

DRUGS (2)
  1. AIMOVIG [Suspect]
     Active Substance: ERENUMAB-AOOE
     Indication: MIGRAINE
     Dosage: ?          QUANTITY:2 INJECTION(S);OTHER FREQUENCY:MONTHLY;?
     Route: 058
     Dates: start: 20180803, end: 20190505
  2. FLORECET [Concomitant]

REACTIONS (4)
  - Palpitations [None]
  - Heart rate irregular [None]
  - Insurance issue [None]
  - Cardiac flutter [None]

NARRATIVE: CASE EVENT DATE: 20190425
